FAERS Safety Report 11701535 (Version 1)
Quarter: 2015Q4

REPORT INFORMATION
  Report Type: Spontaneous
  Country: US (occurrence: US)
  Receive Date: 20151104
  Receipt Date: 20151104
  Transmission Date: 20160304
  Serious: No
  Sender: FDA-Public Use
  Company Number: US-ELI_LILLY_AND_COMPANY-US201101004749

PATIENT
  Sex: Female

DRUGS (1)
  1. FORTEO [Suspect]
     Active Substance: TERIPARATIDE
     Indication: FRACTURE
     Dosage: 20 UG, DAILY (1/D)
     Route: 065
     Dates: start: 201009

REACTIONS (6)
  - Fatigue [Unknown]
  - Palpitations [Unknown]
  - Arrhythmia [Unknown]
  - Dizziness [Unknown]
  - Drug dose omission [Unknown]
  - Off label use [Unknown]
